FAERS Safety Report 9929090 (Version 1)
Quarter: 2014Q1

REPORT INFORMATION
  Report Type: Spontaneous
  Country: US (occurrence: US)
  Receive Date: 20140227
  Receipt Date: 20140227
  Transmission Date: 20141002
  Serious: No
  Sender: FDA-Public Use
  Company Number: US-BAYER-2014-029132

PATIENT
  Sex: Female

DRUGS (2)
  1. CLIMARA [Suspect]
  2. LIPITOR [Concomitant]

REACTIONS (5)
  - Product outer packaging issue [None]
  - Dermatitis contact [None]
  - Pruritus [None]
  - Product adhesion issue [None]
  - Product adhesion issue [None]
